FAERS Safety Report 5144120-5 (Version None)
Quarter: 2006Q4

REPORT INFORMATION
  Report Type: 
  Country: None (occurrence: None)
  Receive Date: 20061106
  Receipt Date: 20061027
  Transmission Date: 20070319
  Serious: Yes (Hospitalization)
  Sender: FDA-Public Use
  Company Number: US-AMGEN-US198375

PATIENT
  Sex: Female

DRUGS (10)
  1. NEUPOGEN [Suspect]
     Indication: CHEMOTHERAPY
     Route: 065
  2. GEMZAR [Concomitant]
     Route: 065
  3. ZOMETA [Concomitant]
     Route: 065
  4. DECADRON [Concomitant]
     Route: 065
  5. OXYCONTIN [Concomitant]
     Route: 065
  6. OXYCODONE HCL [Concomitant]
     Route: 065
  7. LAPATINIB [Concomitant]
     Route: 065
  8. XELODA [Concomitant]
     Route: 065
  9. POTASSIUM ACETATE [Concomitant]
     Route: 065
  10. LISINOPRIL [Concomitant]
     Route: 065

REACTIONS (2)
  - ACUTE RESPIRATORY DISTRESS SYNDROME [None]
  - PNEUMONIA [None]
